FAERS Safety Report 9546568 (Version 3)
Quarter: 2014Q2

REPORT INFORMATION
  Report Type: Spontaneous
  Country: JP (occurrence: JP)
  Receive Date: 20130923
  Receipt Date: 20140620
  Transmission Date: 20141212
  Serious: Yes (Other)
  Sender: FDA-Public Use
  Company Number: JP-009507513-1309JPN010055

PATIENT
  Sex: Female

DRUGS (2)
  1. JANUVIA TABLETS 50MG [Suspect]
     Dosage: DAILY DOSAGE UNKNOWN
     Route: 048
     Dates: end: 2013
  2. AMIODARONE HYDROCHLORIDE [Concomitant]
     Dosage: DAILY DOSAGE UNKNOWN

REACTIONS (1)
  - Interstitial lung disease [Recovered/Resolved]
